FAERS Safety Report 8727366 (Version 3)
Quarter: 2012Q4

REPORT INFORMATION
  Report Type: 
  Country: US (occurrence: US)
  Receive Date: 20120816
  Receipt Date: 20121002
  Transmission Date: 20130627
  Serious: No
  Sender: FDA-Public Use
  Company Number: US-ASTRAZENECA-2012SE55771

PATIENT
  Age: 54 Year
  Sex: Female

DRUGS (3)
  1. NEXIUM [Suspect]
     Route: 048
  2. VIMOVO [Suspect]
     Route: 048
  3. UNSPECIFIED INGREDIENT [Suspect]
     Route: 065

REACTIONS (1)
  - Arthritis [Unknown]
